FAERS Safety Report 12683145 (Version 1)
Quarter: 2016Q3

REPORT INFORMATION
  Report Type: Spontaneous
  Country: US (occurrence: None)
  Receive Date: 20160824
  Receipt Date: 20160824
  Transmission Date: 20161109
  Serious: No
  Sender: FDA-Public Use
  Company Number: None

PATIENT
  Age: 34 Year
  Sex: Female
  Weight: 88.45 kg

DRUGS (1)
  1. CIPROFLOXACIN. [Suspect]
     Active Substance: CIPROFLOXACIN
     Indication: INFECTION
     Route: 048
     Dates: start: 20160811, end: 20160818

REACTIONS (4)
  - Pain in extremity [None]
  - Muscular weakness [None]
  - Arthralgia [None]
  - Grip strength decreased [None]

NARRATIVE: CASE EVENT DATE: 20160819
